FAERS Safety Report 7516163-5 (Version None)
Quarter: 2011Q2

REPORT INFORMATION
  Report Type: 
  Country: None (occurrence: None)
  Receive Date: 20110520
  Receipt Date: 20110509
  Transmission Date: 20111010
  Serious: Yes (Hospitalization)
  Sender: FDA-Public Use
  Company Number: UTC-006593

PATIENT
  Age: 53 Year
  Sex: Female
  Weight: 136.4 kg

DRUGS (4)
  1. DIURETICS (DIURETICS) [Concomitant]
  2. REVATIO [Concomitant]
  3. TYVASO [Suspect]
     Indication: PULMONARY ARTERIAL HYPERTENSION
     Dosage: (36   MCG),INHALATION
     Route: 055
     Dates: start: 20091109
  4. COUMADIN [Concomitant]

REACTIONS (1)
  - ATRIAL FLUTTER [None]
